FAERS Safety Report 6386078-7 (Version None)
Quarter: 2009Q4

REPORT INFORMATION
  Report Type: 
  Country: None (occurrence: None)
  Receive Date: 20091002
  Receipt Date: 20081027
  Transmission Date: 20100525
  Serious: No
  Sender: FDA-Public Use
  Company Number: US-ASTRAZENECA-2008UW23994

PATIENT
  Age: 70 Year
  Sex: Female

DRUGS (1)
  1. ARIMIDEX [Suspect]
     Dosage: UNKNOWN
     Route: 048
     Dates: start: 20060101

REACTIONS (3)
  - GAIT DISTURBANCE [None]
  - ILL-DEFINED DISORDER [None]
  - MUSCULOSKELETAL STIFFNESS [None]
